FAERS Safety Report 6726554-8 (Version None)
Quarter: 2010Q2

REPORT INFORMATION
  Report Type: 
  Country: None (occurrence: None)
  Receive Date: 20100514
  Receipt Date: 20100224
  Transmission Date: 20101027
  Serious: No
  Sender: FDA-Public Use
  Company Number: US-BRISTOL-MYERS SQUIBB COMPANY-14990246

PATIENT
  Age: 63 Year
  Sex: Female

DRUGS (4)
  1. IXEMPRA KIT [Suspect]
     Indication: BREAST CANCER
     Dosage: NO OF INFUSION:3.
     Dates: start: 20091221
  2. RADIATION THERAPY [Suspect]
     Dates: start: 20091229
  3. NORVASC [Concomitant]
  4. ATENOLOL [Concomitant]

REACTIONS (1)
  - SKIN EXFOLIATION [None]
